FAERS Safety Report 4657812-9 (Version None)
Quarter: 2005Q2

REPORT INFORMATION
  Report Type: 
  Country: None (occurrence: None)
  Receive Date: 20050428
  Receipt Date: 20050406
  Transmission Date: 20051028
  Serious: Yes (Other)
  Sender: FDA-Public Use
  Company Number: ZICO001142

PATIENT
  Age: 51 Year
  Sex: Female
  Weight: 74.3899 kg

DRUGS (21)
  1. PRIALT [Suspect]
     Indication: PAIN
     Dosage: 0.175 MCG/HR INTRATHECAL
     Route: 037
     Dates: start: 20040512, end: 20041028
  2. SYNTHROID [Concomitant]
  3. EFFEXOR [Concomitant]
  4. FLOMAX [Concomitant]
  5. NEURONTIN [Concomitant]
  6. TRAZODONE HCL [Concomitant]
  7. AMBIEN [Concomitant]
  8. VALIUM [Concomitant]
  9. BENADRYL [Concomitant]
  10. PHENERGAN [Concomitant]
  11. ADVIL COLD + SINUS (PSEUDOEPHEDRINE HYDROCHLORIDE) [Concomitant]
  12. WELLBUTRIN [Concomitant]
  13. BACLOFEN [Concomitant]
  14. PROTOSAL CREAM (PROTOSAL CREAM) [Concomitant]
  15. MARCAINE [Concomitant]
  16. BETAMETHASONE [Concomitant]
  17. CRESTOR [Concomitant]
  18. SENOKOT [Concomitant]
  19. ROBINOL (GLYCOPYRRONIUM) [Concomitant]
  20. MARINOL [Concomitant]
  21. MOTRIN [Concomitant]

REACTIONS (1)
  - PSYCHOTIC DISORDER [None]
